FAERS Safety Report 7334492-5 (Version None)
Quarter: 2011Q1

REPORT INFORMATION
  Report Type: 
  Country: None (occurrence: None)
  Receive Date: 20110307
  Receipt Date: 20110212
  Transmission Date: 20110831
  Serious: No
  Sender: FDA-Public Use
  Company Number: US-B.I. PHARMACEUTICALS,INC./RIDGEFIELD-2011-BP-06041BP

PATIENT
  Age: 73 Year
  Sex: Female

DRUGS (7)
  1. LOVASTATIN [Concomitant]
     Indication: BLOOD CHOLESTEROL INCREASED
  2. TIMOLOL [Concomitant]
     Indication: GLAUCOMA
  3. XALATAN [Concomitant]
     Indication: CATARACT
  4. TIMOLOL [Concomitant]
     Indication: CATARACT
  5. ZANTAC 150 [Suspect]
     Indication: DYSPEPSIA
     Dosage: 150 MG
     Route: 048
     Dates: start: 20100101
  6. SYNTHROID [Concomitant]
     Indication: HYPOTHYROIDISM
  7. XALATAN [Concomitant]
     Indication: GLAUCOMA

REACTIONS (2)
  - ERUCTATION [None]
  - GASTROOESOPHAGEAL REFLUX DISEASE [None]
